FAERS Safety Report 11199100 (Version 2)
Quarter: 2015Q3

REPORT INFORMATION
  Report Type: Spontaneous
  Country: BR (occurrence: BR)
  Receive Date: 20150618
  Receipt Date: 20150807
  Transmission Date: 20151125
  Serious: Yes (Other)
  Sender: FDA-Public Use
  Company Number: BR-ENDO PHARMACEUTICALS INC.-2015-001369

PATIENT
  Age: 64 Year
  Sex: Male

DRUGS (1)
  1. AVEED [Suspect]
     Active Substance: TESTOSTERONE UNDECANOATE
     Indication: HORMONE REPLACEMENT THERAPY
     Dosage: INTERVAL BETW 1ST AND 2ND INJ 45 DAYS, FOLLOWING INJECTIONS EVERY 10 WEEKS
     Route: 030
     Dates: start: 20150228

REACTIONS (2)
  - Injection site pain [Recovered/Resolved]
  - Pulmonary microemboli [Recovered/Resolved]

NARRATIVE: CASE EVENT DATE: 20150228
